FAERS Safety Report 16808841 (Version 1)
Quarter: 2019Q3

REPORT INFORMATION
  Report Type: Spontaneous
  Country: SE (occurrence: SE)
  Receive Date: 20190916
  Receipt Date: 20190916
  Transmission Date: 20191005
  Serious: Yes (Hospitalization)
  Sender: FDA-Public Use
  Company Number: SE-TEVA-2019-SE-1106370

PATIENT
  Age: 25 Year
  Sex: Male

DRUGS (3)
  1. ZOLPIDEM [Suspect]
     Active Substance: ZOLPIDEM TARTRATE
     Dosage: 100 MG
     Route: 048
     Dates: start: 20190131, end: 20190131
  2. LERGIGAN (PROMETHAZINE HYDROCHLORIDE) [Suspect]
     Active Substance: PROMETHAZINE HYDROCHLORIDE
     Dosage: 500 MG
     Route: 048
     Dates: start: 20190131, end: 20190131
  3. BACLOFEN. [Suspect]
     Active Substance: BACLOFEN
     Dosage: 250 MILLIGRAM
     Route: 048
     Dates: start: 20190131, end: 20190131

REACTIONS (7)
  - Intentional self-injury [Unknown]
  - Staring [Unknown]
  - Intentional overdose [Unknown]
  - Electrocardiogram QT prolonged [Unknown]
  - Hallucination [Unknown]
  - Psychotic disorder [Unknown]
  - Akathisia [Unknown]

NARRATIVE: CASE EVENT DATE: 20190131
